FAERS Safety Report 5728582-8 (Version None)
Quarter: 2008Q2

REPORT INFORMATION
  Report Type: 
  Country: None (occurrence: None)
  Receive Date: 20080502
  Receipt Date: 20080502
  Transmission Date: 20081010
  Serious: Yes (Other)
  Sender: FDA-Public Use
  Company Number: None

PATIENT
  Age: 67 Year
  Sex: Female
  Weight: 63.5036 kg

DRUGS (2)
  1. DIGOXIN [Suspect]
     Indication: ATRIAL FIBRILLATION
     Dosage: 0.25MG 1 DAILY PO; MONTH OR 60 PILLS
     Route: 048
     Dates: start: 20080301, end: 20080429
  2. DIGOXIN [Suspect]
     Indication: HEART VALVE REPLACEMENT
     Dosage: 0.25MG 1 DAILY PO; MONTH OR 60 PILLS
     Route: 048
     Dates: start: 20080301, end: 20080429

REACTIONS (2)
  - FATIGUE [None]
  - INSOMNIA [None]
